FAERS Safety Report 6443259-1 (Version None)
Quarter: 2009Q4

REPORT INFORMATION
  Report Type: 
  Country: None (occurrence: None)
  Receive Date: 20091113
  Receipt Date: 20091104
  Transmission Date: 20100525
  Serious: Yes (Death, Hospitalization)
  Sender: FDA-Public Use
  Company Number: 2009AC000366

PATIENT
  Age: 66 Year
  Sex: Male

DRUGS (23)
  1. DIGOXIN [Suspect]
     Indication: CARDIAC FAILURE CONGESTIVE
     Dosage: 0.125 MG; QD
     Dates: start: 20070701, end: 20080424
  2. TORSEMIDE [Concomitant]
  3. CHLOROTHIAZ [Concomitant]
  4. NEXIUM [Concomitant]
  5. AMIODARONE HCL [Concomitant]
  6. LEVOTHYROXINE SODIUM [Concomitant]
  7. LIPITOR [Concomitant]
  8. RAMIPRIL [Concomitant]
  9. ALPRAZOLAM [Concomitant]
  10. LANOXIN [Concomitant]
  11. MIRTAZAPINE [Concomitant]
  12. ZOLPIDEM [Concomitant]
  13. SPIRONOLACTONE [Concomitant]
  14. SERTRALINE HCL [Concomitant]
  15. CARVEDILOL [Concomitant]
  16. COREG [Concomitant]
  17. SPIRONOLACTONE [Concomitant]
  18. QUINAPRIL [Concomitant]
  19. FEXOFENADINE [Concomitant]
  20. ALPRAZOLAM [Concomitant]
  21. FUROSEMIDE [Concomitant]
  22. LIPITOR [Concomitant]
  23. PREDNISONE [Concomitant]

REACTIONS (8)
  - ARTERIAL GRAFT [None]
  - CARDIAC FAILURE CONGESTIVE [None]
  - FEELING ABNORMAL [None]
  - ISCHAEMIC CARDIOMYOPATHY [None]
  - MALAISE [None]
  - THERAPEUTIC AGENT TOXICITY [None]
  - VASCULAR GRAFT [None]
  - VOMITING [None]
